FAERS Safety Report 9917501 (Version 3)
Quarter: 2014Q1

REPORT INFORMATION
  Report Type: Spontaneous
  Country: IL (occurrence: IL)
  Receive Date: 20140221
  Receipt Date: 20140303
  Transmission Date: 20141002
  Serious: Yes (Hospitalization, Other)
  Sender: FDA-Public Use
  Company Number: IL-BAYER-2014-023358

PATIENT
  Age: 72 Year
  Sex: Male
  Weight: 70 kg

DRUGS (20)
  1. XARELTO 20MG JANSSEN [Suspect]
     Indication: CEREBROVASCULAR ACCIDENT PROPHYLAXIS
     Dosage: 20 MG, UNK
     Dates: start: 201401, end: 20140123
  2. XARELTO 20MG JANSSEN [Suspect]
     Indication: ATRIAL FIBRILLATION
  3. LANTUS [Concomitant]
     Dosage: 100 IU / 1 ML
  4. OMEPRADEX [Concomitant]
     Route: 048
  5. JANUVIA [Concomitant]
  6. METFORMIN HCL [Concomitant]
     Dosage: 850 MG, QD
  7. ATORVASTATIN [Concomitant]
     Dosage: 10 MG, QD
     Route: 048
  8. ASPIRIN [Suspect]
     Route: 048
  9. ENALAPRIL [Suspect]
     Dosage: 20 MG, UNK
     Route: 048
  10. ALLOPURINOL [Suspect]
     Dosage: 100 MG, UNK
     Route: 048
  11. ETHANOL [Concomitant]
     Dosage: 70%
     Route: 061
  12. CARDILOC [Concomitant]
     Dosage: 2.5 MG, BID
     Route: 048
  13. OMEPRADEX [Concomitant]
     Dosage: 20 MG, QD
     Route: 048
  14. VITAMIN D [Concomitant]
     Dosage: 400 IU
     Route: 048
  15. JANUVIA [Concomitant]
     Dosage: 100 MG, QD
     Route: 048
  16. AMLODIPINE MALEATE [Concomitant]
     Dosage: DAILY DOSE 10 MG
     Route: 048
  17. VITAMIN B12 + FOLIC ACID [Concomitant]
     Dosage: DAILY DOSE 1 DF
     Route: 048
  18. FRUSEMIDE [Concomitant]
     Dosage: 40 MG, BID
     Route: 048
  19. SPIRONOLACTONE [Concomitant]
     Dosage: 25 MG, QD
     Route: 048
  20. PRADAXA [Concomitant]
     Dosage: 110 MG, BID
     Route: 048

REACTIONS (11)
  - Subcutaneous haematoma [Recovered/Resolved]
  - Drug hypersensitivity [Recovered/Resolved]
  - Pruritus [Recovered/Resolved]
  - Rash [Recovered/Resolved]
  - Upper respiratory tract infection [None]
  - Rhinorrhoea [None]
  - Pyrexia [None]
  - Cough [None]
  - Laryngeal oedema [Recovered/Resolved]
  - Angioedema [None]
  - Gastrointestinal ulcer haemorrhage [None]
